FAERS Safety Report 7094462-1 (Version None)
Quarter: 2010Q4

REPORT INFORMATION
  Report Type: 
  Country: None (occurrence: None)
  Receive Date: 20101110
  Receipt Date: 20101028
  Transmission Date: 20110411
  Serious: Yes (Other)
  Sender: FDA-Public Use
  Company Number: PHHY2010RO72476

PATIENT
  Sex: Male

DRUGS (3)
  1. ZOMETA [Suspect]
     Indication: METASTASES TO BONE
     Dosage: 4 MG, QMO
  2. ZOLADEX [Concomitant]
     Dosage: 1 DF, QMO
  3. TAXOTERE [Concomitant]
     Dosage: 100 MG TO 3 WEEKS

REACTIONS (2)
  - OEDEMA MOUTH [None]
  - PAIN IN JAW [None]
